FAERS Safety Report 14184770 (Version 1)
Quarter: 2017Q4

REPORT INFORMATION
  Report Type: Spontaneous
  Country: US (occurrence: US)
  Receive Date: 20171113
  Receipt Date: 20171113
  Transmission Date: 20180321
  Serious: No
  Sender: FDA-Public Use
  Company Number: US-BAUSCH-BL-2017-010726

PATIENT
  Sex: Female
  Weight: 97.61 kg

DRUGS (1)
  1. EQUATE EYE ITCH RELIEF [Suspect]
     Active Substance: KETOTIFEN FUMARATE
     Dosage: AS NEEDED
     Dates: start: 20170327, end: 20170405

REACTIONS (3)
  - Dry eye [Unknown]
  - Eye irritation [Unknown]
  - Pain [Unknown]

NARRATIVE: CASE EVENT DATE: 20170413
